FAERS Safety Report 5143379-8 (Version None)
Quarter: 2006Q4

REPORT INFORMATION
  Report Type: 
  Country: None (occurrence: None)
  Receive Date: 20061101
  Receipt Date: 20061101
  Transmission Date: 20070319
  Serious: Yes (Life-Threatening, Hospitalization)
  Sender: FDA-Public Use
  Company Number: None

PATIENT
  Age: 7 Year
  Sex: Male

DRUGS (2)
  1. DAPSONE [Suspect]
     Indication: PNEUMOCYSTIS JIROVECI PNEUMONIA
     Dosage: 37.5 MG DAILY PO
     Route: 048
     Dates: start: 20060601, end: 20061009
  2. DAPSONE [Suspect]
     Indication: PROPHYLAXIS
     Dosage: 37.5 MG DAILY PO
     Route: 048
     Dates: start: 20060601, end: 20061009

REACTIONS (8)
  - BLOOD METHAEMOGLOBIN PRESENT [None]
  - BLOOD PH INCREASED [None]
  - CYANOSIS [None]
  - FLUID OVERLOAD [None]
  - HAEMOGLOBIN DECREASED [None]
  - OEDEMA [None]
  - OXYGEN SATURATION DECREASED [None]
  - PLATELET COUNT DECREASED [None]
